FAERS Safety Report 16285834 (Version 1)
Quarter: 2019Q2

REPORT INFORMATION
  Report Type: Spontaneous
  Country: US (occurrence: US)
  Receive Date: 20190506
  Receipt Date: 20190506
  Transmission Date: 20190711
  Serious: Yes (Life-Threatening, Hospitalization, Disabling, Other)
  Sender: FDA-Public Use
  Company Number: None

PATIENT
  Age: 23 Year
  Sex: Female
  Weight: 64.41 kg

DRUGS (1)
  1. NEXPLANON [Suspect]
     Active Substance: ETONOGESTREL
     Indication: CONTRACEPTION
     Dates: start: 20170920, end: 20190306

REACTIONS (17)
  - Anxiety [None]
  - Gastric ulcer [None]
  - Obesity [None]
  - Arthropathy [None]
  - Pain [None]
  - Joint stiffness [None]
  - Paraesthesia [None]
  - Depression [None]
  - Dyspnoea [None]
  - Weight increased [None]
  - Pain in extremity [None]
  - Dizziness [None]
  - Erythema [None]
  - Arthralgia [None]
  - Suicide attempt [None]
  - Migraine [None]
  - Abdominal distension [None]

NARRATIVE: CASE EVENT DATE: 20190306
